FAERS Safety Report 4830120-9 (Version None)
Quarter: 2005Q4

REPORT INFORMATION
  Report Type: 
  Country: None (occurrence: None)
  Receive Date: 20051117
  Receipt Date: 20051107
  Transmission Date: 20060501
  Serious: Yes (Other)
  Sender: FDA-Public Use
  Company Number: 2005GB02156

PATIENT
  Age: 69 Year
  Sex: Male

DRUGS (8)
  1. ZOLADEX [Suspect]
     Indication: PROSTATE CANCER
     Route: 058
     Dates: start: 20041001, end: 20051017
  2. ATENOLOL [Concomitant]
     Route: 065
  3. NITRAZEPAM [Concomitant]
     Dosage: 5 MG AS DIRECTED
     Route: 065
  4. HYDROCORTISONE [Concomitant]
     Dosage: TAKEN AS DIRECTED
     Route: 061
  5. MINIMS ARTIFICIAL TEARS [Concomitant]
     Dosage: TAKEN AS DIRECTED
     Route: 047
  6. AQUEOUS CREAM BP [Concomitant]
     Dosage: TAKEN AS DIRECTED
     Route: 065
  7. LIGNOCAINE [Concomitant]
     Route: 065
  8. CLOTRIMAZOLE [Concomitant]
     Dosage: TAKEN AS DIRECTED
     Route: 061

REACTIONS (1)
  - DIPLOPIA [None]
